FAERS Safety Report 4514650-5 (Version None)
Quarter: 2004Q4

REPORT INFORMATION
  Report Type: 
  Country: None (occurrence: None)
  Receive Date: 20041126
  Receipt Date: 20041110
  Transmission Date: 20050328
  Serious: Yes (Hospitalization)
  Sender: FDA-Public Use
  Company Number: 800191

PATIENT
  Age: 71 Year
  Sex: Male
  Weight: 61.7 kg

DRUGS (15)
  1. EXTRANEAL [Suspect]
     Indication: PERITONEAL DIALYSIS
     Dosage: 1.5 L; QD; INTRAPERITONEAL
     Route: 033
     Dates: start: 20040610, end: 20040921
  2. DIANEAL [Concomitant]
  3. GASMOTIN [Concomitant]
  4. APRESOLINE [Concomitant]
  5. CONIEL [Concomitant]
  6. DIOVAN [Concomitant]
  7. CARDENALIN [Concomitant]
  8. INDERAL [Concomitant]
  9. SALOBEL [Concomitant]
  10. PROTECADIN [Concomitant]
  11. ENALAPRIL MALEATE [Concomitant]
  12. ASPIRIN [Concomitant]
  13. PURSENNID [Concomitant]
  14. MAGNESIUM OXIDE [Concomitant]
  15. PENFILL R [Concomitant]

REACTIONS (8)
  - ALANINE AMINOTRANSFERASE INCREASED [None]
  - ASPARTATE AMINOTRANSFERASE INCREASED [None]
  - BLOOD ALKALINE PHOSPHATASE INCREASED [None]
  - C-REACTIVE PROTEIN INCREASED [None]
  - DEPRESSED LEVEL OF CONSCIOUSNESS [None]
  - HAEMODIALYSIS [None]
  - LEUCINE AMINOPEPTIDASE INCREASED [None]
  - PYREXIA [None]
